FAERS Safety Report 6572371-1 (Version None)
Quarter: 2010Q1

REPORT INFORMATION
  Report Type: 
  Country: None (occurrence: None)
  Receive Date: 20100205
  Receipt Date: 20100126
  Transmission Date: 20100710
  Serious: Yes (Other)
  Sender: FDA-Public Use
  Company Number: US-WATSON-2010-01154

PATIENT
  Age: 32 Year
  Sex: Female

DRUGS (2)
  1. DEXAMETHASONE [Suspect]
     Indication: NAUSEA
     Dosage: 8 MG, 1/WEEK
     Route: 048
  2. CISPLATIN [Suspect]
     Indication: MESOTHELIOMA
     Dosage: UNK

REACTIONS (2)
  - CONVULSION [None]
  - REVERSIBLE POSTERIOR LEUKOENCEPHALOPATHY SYNDROME [None]
